FAERS Safety Report 9439617 (Version 1)
Quarter: 2013Q3

REPORT INFORMATION
  Report Type: Spontaneous
  Country: GB (occurrence: GB)
  Receive Date: 20130805
  Receipt Date: 20130805
  Transmission Date: 20140515
  Serious: Yes (Life-Threatening, Hospitalization)
  Sender: FDA-Public Use
  Company Number: GB-JNJFOC-20130719036

PATIENT
  Age: 57 Year
  Sex: 0

DRUGS (3)
  1. PARACETAMOL [Suspect]
     Route: 042
  2. PARACETAMOL [Suspect]
     Indication: POSTOPERATIVE ANALGESIA
     Route: 042
     Dates: start: 201210, end: 201210
  3. PATENT BLUE V [Suspect]
     Indication: BIOPSY
     Route: 058
     Dates: start: 201210, end: 201210

REACTIONS (1)
  - Anaphylactic reaction [Recovered/Resolved]
